FAERS Safety Report 12468118 (Version 8)
Quarter: 2022Q4

REPORT INFORMATION
  Report Type: Report from Study
  Country: US (occurrence: US)
  Receive Date: 20160615
  Receipt Date: 20221212
  Transmission Date: 20230113
  Serious: Yes (Other)
  Sender: FDA-Public Use
  Company Number: US-PFIZER INC-2016287804

PATIENT
  Age: 67 Year
  Sex: Male
  Weight: 77 kg

DRUGS (31)
  1. LYRICA [Suspect]
     Active Substance: PREGABALIN
     Indication: Product used for unknown indication
     Dosage: 150 MG, DAILY (75MG TWO CAPSULE BY MOUTH A DAY)
     Route: 048
     Dates: start: 2011
  2. LYRICA [Suspect]
     Active Substance: PREGABALIN
     Dosage: 75 MG, 2X/DAY (ONE IN THE MORNING AND ONE AT NIGHT) REGIMEN DOSE UNIT: MILLIGRAM
     Route: 048
     Dates: start: 2013
  3. LYRICA [Suspect]
     Active Substance: PREGABALIN
     Dosage: 75 MG, 1X/DAY REGIMEN DOSE UNIT: MILLIGRAM
     Route: 048
  4. LYRICA [Suspect]
     Active Substance: PREGABALIN
     Dosage: 75 MG, 2X/DAY
     Route: 048
     Dates: end: 201509
  5. LYRICA [Suspect]
     Active Substance: PREGABALIN
     Dosage: 75 MILLIGRAM, TID
     Route: 048
  6. LYRICA [Suspect]
     Active Substance: PREGABALIN
     Dosage: UNK
     Route: 065
     Dates: end: 2015
  7. LYRICA [Suspect]
     Active Substance: PREGABALIN
     Dosage: UNK
     Route: 065
     Dates: end: 20170301
  8. LYRICA [Suspect]
     Active Substance: PREGABALIN
     Dosage: 225 MG, DAILY (3 RED/WHITE CAPSULES BY MOUTH DAILY )
     Route: 065
  9. PREGABALIN [Suspect]
     Active Substance: PREGABALIN
     Indication: Product used for unknown indication
     Dosage: UNK, START: ??-???-2018
     Route: 065
  10. ATENOLOL [Concomitant]
     Active Substance: ATENOLOL
     Indication: Blood pressure measurement
     Dosage: 50 MG, 1X/DAY REGIMEN DOSE UNIT: MILLIGRAM
     Route: 065
     Dates: start: 2006
  11. ENALAPRIL [Concomitant]
     Active Substance: ENALAPRIL
     Indication: Blood pressure measurement
     Dosage: 20 MG, 1X/DAY REGIMEN DOSE UNIT: MILLIGRAM
     Route: 065
     Dates: start: 2006
  12. ALLOPURINOL [Concomitant]
     Active Substance: ALLOPURINOL
     Indication: Gout
     Dosage: 300 MG, 1X/DAY REGIMEN DOSE UNIT: MILLIGRAM
     Route: 065
  13. ALLOPURINOL [Concomitant]
     Active Substance: ALLOPURINOL
     Indication: Blood uric acid abnormal
     Dosage: UNK
     Route: 065
     Dates: start: 2002
  14. ATORVASTATIN [Concomitant]
     Active Substance: ATORVASTATIN
     Indication: Blood cholesterol abnormal
     Dosage: 20 MG, 1X/DAY REGIMEN DOSE UNIT: MILLIGRAM
     Route: 065
     Dates: start: 2010
  15. PERCOCET [Concomitant]
     Active Substance: ACETAMINOPHEN\OXYCODONE HYDROCHLORIDE
     Indication: Pain
     Dosage: 10MG TABLET, 1 TABLET EVERY 4 HOURS AS NEEDED
     Route: 065
     Dates: end: 2016
  16. PERCOCET [Concomitant]
     Active Substance: ACETAMINOPHEN\OXYCODONE HYDROCHLORIDE
     Dosage: UNK UNK, DAILY (10S A DAY TO 25 MIL A DAY)
     Route: 065
  17. PERCOCET [Concomitant]
     Active Substance: ACETAMINOPHEN\OXYCODONE HYDROCHLORIDE
     Dosage: UNK UNK, DAILY (510 MILL A DAY, 2.5 MILLS A DAY )
     Route: 065
  18. PERCOCET [Concomitant]
     Active Substance: ACETAMINOPHEN\OXYCODONE HYDROCHLORIDE
     Dosage: UNK UNK, DAILY (4X5 MILLS A DAY )
     Route: 065
  19. PERCOCET [Concomitant]
     Active Substance: ACETAMINOPHEN\OXYCODONE HYDROCHLORIDE
     Dosage: UNK
     Route: 065
     Dates: start: 2007, end: 201606
  20. PERCOCET [Concomitant]
     Active Substance: ACETAMINOPHEN\OXYCODONE HYDROCHLORIDE
     Dosage: UNK (TAKING FIVE 10 MG TABLETS, ROUGHLY 50 MG A DAY)
     Route: 065
     Dates: start: 2011
  21. PERCOCET [Concomitant]
     Active Substance: ACETAMINOPHEN\OXYCODONE HYDROCHLORIDE
     Dosage: 10 MG, DAILY (TWO 5MG PERCOCET TABLETS A DAY, START: ??-???-2016
     Route: 065
  22. PERCOCET [Concomitant]
     Active Substance: ACETAMINOPHEN\OXYCODONE HYDROCHLORIDE
     Dosage: ONE 5MG TABLETS TWICE A DAY REGIMEN DOSE UNIT: MILLIGRAM
     Route: 048
  23. PERCOCET [Concomitant]
     Active Substance: ACETAMINOPHEN\OXYCODONE HYDROCHLORIDE
     Dosage: UNK
     Route: 065
  24. PERCOCET [Concomitant]
     Active Substance: ACETAMINOPHEN\OXYCODONE HYDROCHLORIDE
     Dosage: 50 MG, 1X/DAY (5 OF THE PERCOCET 10MG A DAY) REGIMEN DOSE UNIT: MILLIGRAM
     Route: 065
  25. PERCOCET [Concomitant]
     Active Substance: ACETAMINOPHEN\OXYCODONE HYDROCHLORIDE
     Dosage: 20 MG, 1X/DAY (PERCOCET DOSE DOWN TO 2 OF THE 10MG A DAY) REGIMEN DOSE UNIT: MILLIGRAM
     Route: 065
  26. LEFLUNOMIDE [Concomitant]
     Active Substance: LEFLUNOMIDE
     Indication: Rheumatoid arthritis
     Dosage: 20 MG, 1X/DAY REGIMEN DOSE UNIT: MILLIGRAM
     Route: 065
  27. LEFLUNOMIDE [Concomitant]
     Active Substance: LEFLUNOMIDE
     Indication: Spinal disorder
     Dosage: UNK (45 MG A DAY TO (5 10 MILL) A DAY IN 7 YEARS)
     Route: 065
  28. LEFLUNOMIDE [Concomitant]
     Active Substance: LEFLUNOMIDE
     Indication: Pain
  29. LEFLUNOMIDE [Concomitant]
     Active Substance: LEFLUNOMIDE
     Indication: Fibromyalgia
  30. NORTRIPTYLINE [Concomitant]
     Active Substance: NORTRIPTYLINE
     Indication: Pain
     Dosage: UNK, START: ??-???-2016
     Route: 065
  31. NORTRIPTYLINE [Concomitant]
     Active Substance: NORTRIPTYLINE
     Indication: Insomnia

REACTIONS (24)
  - Rheumatoid arthritis [Recovered/Resolved]
  - Drug dependence [Unknown]
  - Hypoaesthesia [Unknown]
  - Quality of life decreased [Unknown]
  - Bedridden [Recovered/Resolved]
  - Nervous system disorder [Unknown]
  - Upper respiratory tract irritation [Unknown]
  - Hypoacusis [Unknown]
  - Nerve injury [Unknown]
  - Arthritis [Unknown]
  - Sinusitis [Not Recovered/Not Resolved]
  - Depressed mood [Unknown]
  - Dysphonia [Unknown]
  - Muscle spasms [Unknown]
  - Tremor [Unknown]
  - Peripheral swelling [Recovered/Resolved]
  - Joint swelling [Recovered/Resolved]
  - Disturbance in attention [Unknown]
  - Pain [Recovered/Resolved]
  - Feeling abnormal [Recovered/Resolved]
  - Fatigue [Unknown]
  - Intentional product use issue [Recovered/Resolved]
  - Therapy interrupted [Unknown]
  - Blood pressure decreased [Unknown]

NARRATIVE: CASE EVENT DATE: 20150901
